FAERS Safety Report 9376390 (Version 5)
Quarter: 2013Q4

REPORT INFORMATION
  Report Type: Spontaneous
  Country: US (occurrence: US)
  Receive Date: 20130701
  Receipt Date: 20131028
  Transmission Date: 20140711
  Serious: No
  Sender: FDA-Public Use
  Company Number: US-JNJFOC-20130605113

PATIENT
  Sex: Male
  Weight: 58.97 kg

DRUGS (4)
  1. INVEGA SUSTENNA [Suspect]
     Indication: SCHIZOPHRENIA
     Route: 030
     Dates: start: 2012, end: 2012
  2. INVEGA SUSTENNA [Suspect]
     Indication: SCHIZOPHRENIA
     Route: 030
     Dates: start: 2012
  3. INVEGA SUSTENNA [Suspect]
     Indication: SCHIZOPHRENIA
     Route: 030
     Dates: start: 201305, end: 201305
  4. INVEGA SUSTENNA [Suspect]
     Indication: SCHIZOPHRENIA
     Dosage: INITIAL DOSE
     Route: 030
     Dates: start: 2012, end: 2012

REACTIONS (5)
  - Abnormal dreams [Recovered/Resolved]
  - Depressed mood [Recovered/Resolved]
  - Decreased appetite [Recovered/Resolved]
  - General physical health deterioration [Recovered/Resolved]
  - Treatment noncompliance [Not Recovered/Not Resolved]
